FAERS Safety Report 5365822-1 (Version None)
Quarter: 2007Q2

REPORT INFORMATION
  Report Type: 
  Country: None (occurrence: None)
  Receive Date: 20070621
  Receipt Date: 20070608
  Transmission Date: 20071010
  Serious: Yes (Death)
  Sender: FDA-Public Use
  Company Number: US-SHR-US-2007-021630

PATIENT
  Age: 83 Year
  Sex: Female

DRUGS (1)
  1. BETASERON [Suspect]
     Route: 058
     Dates: start: 19990129

REACTIONS (1)
  - DEATH [None]
